FAERS Safety Report 4621096-8 (Version None)
Quarter: 2005Q1

REPORT INFORMATION
  Report Type: 
  Country: None (occurrence: None)
  Receive Date: 20050325
  Receipt Date: 20050316
  Transmission Date: 20050727
  Serious: Yes (Other)
  Sender: FDA-Public Use
  Company Number: 2005046381

PATIENT
  Age: 80 Year
  Sex: Female

DRUGS (5)
  1. DEPO-MEDROL [Suspect]
     Indication: ARTHRITIS
     Dosage: 80 MG, INTRA-ARTER1AL
     Route: 013
     Dates: start: 20050221
  2. SIMVASTATIN [Concomitant]
  3. LOSARTAN (LOSARTAN) [Concomitant]
  4. BENDROFLUEMTHIAZIDE (BENDROFLUEMTHIAZIDE) [Concomitant]
  5. ASPIRIN [Concomitant]

REACTIONS (2)
  - FEELING HOT [None]
  - SYNCOPE [None]
